FAERS Safety Report 16208708 (Version 1)
Quarter: 2019Q2

REPORT INFORMATION
  Report Type: Spontaneous
  Country: PL (occurrence: PL)
  Receive Date: 20190417
  Receipt Date: 20190417
  Transmission Date: 20190711
  Serious: Yes (Other)
  Sender: FDA-Public Use
  Company Number: PL-TEVA-2019-PL-1038058

PATIENT
  Age: 67 Year

DRUGS (4)
  1. CALCIUM FOLINATE [Suspect]
     Active Substance: LEUCOVORIN CALCIUM
     Indication: COLON CANCER
     Dosage: DAILY DOSE 200MG/M2 (361MG)
     Route: 042
     Dates: start: 20160816, end: 20160817
  2. FLUOROURACIL. [Suspect]
     Active Substance: FLUOROURACIL
     Indication: COLON CANCER
     Dosage: DAILY DOSE 400MG/M2 (723MG)
     Route: 042
     Dates: start: 20160816, end: 20160817
  3. IRINOTECAN [Suspect]
     Active Substance: IRINOTECAN
     Indication: COLON CANCER
     Dosage: DAILY DOSE 180MG/M2 (325MG) ADMINISTERED WITH 0,5 AMPULE OF ATROPINE
     Route: 042
     Dates: start: 20160816, end: 20160817
  4. FLUOROURACIL. [Suspect]
     Active Substance: FLUOROURACIL
     Dosage: DAILY DOSE 600MG/M2 (1084MG)
     Dates: start: 20160816, end: 20160817

REACTIONS (1)
  - Neutropenia [Unknown]

NARRATIVE: CASE EVENT DATE: 20160906
